FAERS Safety Report 14470486 (Version 3)
Quarter: 2020Q4

REPORT INFORMATION
  Report Type: Spontaneous
  Country: LT (occurrence: LT)
  Receive Date: 20180131
  Receipt Date: 20201210
  Transmission Date: 20210113
  Serious: Yes (Life-Threatening, Hospitalization, Other)
  Sender: FDA-Public Use
  Company Number: PHHY2017LT189920

PATIENT
  Age: 53 Year
  Sex: Female

DRUGS (25)
  1. TRAMADOL HYDROCHLORIDE. [Interacting]
     Active Substance: TRAMADOL HYDROCHLORIDE
     Indication: PAIN
  2. ONDANSETRON [Suspect]
     Active Substance: ONDANSETRON
     Indication: PROPHYLAXIS OF NAUSEA AND VOMITING
     Dosage: 8 MG, DAILY
     Route: 048
     Dates: start: 2016
  3. APREPITANT. [Interacting]
     Active Substance: APREPITANT
     Indication: PROPHYLAXIS
  4. FENTANYL. [Interacting]
     Active Substance: FENTANYL
     Indication: PAIN MANAGEMENT
     Dosage: 75 MG, QH
     Route: 062
     Dates: start: 2016
  5. CISPLATIN. [Interacting]
     Active Substance: CISPLATIN
     Indication: PLEURAL MESOTHELIOMA
     Dosage: 150 MG, QD (2 CYCLES AFTER 6 PREVIOUS CYCLES OF CISPLATIN AND PEMETREXED))
     Route: 042
     Dates: start: 2015
  6. CISPLATIN. [Interacting]
     Active Substance: CISPLATIN
     Dosage: 150 MG, QD (2 CYCLES AFTER 6 PREVIOUS CYCLES OF CISPLATIN AND PEMETREXED)
     Route: 042
     Dates: start: 2016, end: 2016
  7. TIANEPTINE [Interacting]
     Active Substance: TIANEPTINE
     Indication: PAIN
  8. ANGIOCELL [Interacting]
     Active Substance: SHARK CARTILAGE\SHARK, UNSPECIFIED
     Indication: PRODUCT USED FOR UNKNOWN INDICATION
     Dosage: 7.5 ML, QD
     Route: 048
     Dates: start: 2016
  9. DEXAMETHASONE. [Suspect]
     Active Substance: DEXAMETHASONE
     Dosage: 8 DF
     Route: 048
  10. ANGIOCELL [Interacting]
     Active Substance: SHARK CARTILAGE\SHARK, UNSPECIFIED
     Dosage: 8 ML, UNK
     Route: 048
     Dates: start: 2016
  11. CYANOCOBALAMIN. [Interacting]
     Active Substance: CYANOCOBALAMIN
     Indication: PREMEDICATION
     Dosage: 1000 MG, UNK
     Route: 042
     Dates: start: 2016
  12. TIANEPTINE [Interacting]
     Active Substance: TIANEPTINE
     Indication: PAIN MANAGEMENT
     Route: 048
     Dates: start: 2016
  13. PEMETREXED DISODIUM [Interacting]
     Active Substance: PEMETREXED DISODIUM
     Indication: PLEURAL MESOTHELIOMA
     Dosage: UNK (SECOND CYCLE SECOND)
     Route: 065
     Dates: start: 201611
  14. FOLIC ACID. [Interacting]
     Active Substance: FOLIC ACID
     Indication: PREMEDICATION
     Dosage: 1000 MG, QD
     Route: 042
     Dates: start: 2016
  15. BETALOC ZOK [Interacting]
     Active Substance: METOPROLOL SUCCINATE
     Indication: HYPERTENSION
     Dosage: 47.5 MG, QD
     Route: 048
     Dates: start: 2016
  16. FENTANYL. [Interacting]
     Active Substance: FENTANYL
     Indication: PAIN
     Dosage: 1800 UG, QD
     Route: 065
  17. ALPRAZOLAM. [Interacting]
     Active Substance: ALPRAZOLAM
     Indication: ANXIETY DISORDER
     Dosage: 0.5 MG, QD (LONG TERM USE)
     Route: 048
     Dates: start: 2016
  18. DEXAMETHASONE. [Suspect]
     Active Substance: DEXAMETHASONE
     Indication: PREMEDICATION
     Dosage: 4 MG, QD (8 TABLETS)
     Route: 048
     Dates: start: 2016
  19. DEXAMETHASONE. [Suspect]
     Active Substance: DEXAMETHASONE
     Dosage: 4 MG
     Route: 048
     Dates: start: 20161120, end: 20161121
  20. TRAMADOL HYDROCHLORIDE. [Interacting]
     Active Substance: TRAMADOL HYDROCHLORIDE
     Indication: PAIN MANAGEMENT
     Dosage: 100 MG, QD (LONG-TERM USE)
     Route: 048
     Dates: start: 2016
  21. EPINEPHRINE HCL [Interacting]
     Active Substance: EPINEPHRINE
     Indication: CARDIO-RESPIRATORY ARREST
     Route: 065
  22. APREPITANT. [Interacting]
     Active Substance: APREPITANT
     Indication: PROPHYLAXIS OF NAUSEA AND VOMITING
     Dosage: 125 MG, QD
     Route: 048
     Dates: start: 2016
  23. CISPLATIN. [Interacting]
     Active Substance: CISPLATIN
     Dosage: 0.5MG/ML 100ML - II CYCLE
     Route: 042
     Dates: start: 201611
  24. TIANEPTINE [Interacting]
     Active Substance: TIANEPTINE
     Indication: DEPRESSION
  25. MANNITOL. [Interacting]
     Active Substance: MANNITOL
     Indication: DRUG TOXICITY PROPHYLAXIS
     Dosage: 1000 ML, DAILY (10 PROC.)
     Route: 042
     Dates: start: 2016

REACTIONS (13)
  - Anaphylactic reaction [Recovered/Resolved]
  - Hypomagnesaemia [Unknown]
  - Toxicity to various agents [Unknown]
  - Cardiac arrest [Recovered/Resolved]
  - Hypersensitivity [Recovered/Resolved]
  - Cardiotoxicity [Recovered/Resolved]
  - Haemodynamic instability [Recovered/Resolved]
  - Circulatory collapse [Recovered/Resolved]
  - Overdose [Recovered/Resolved]
  - Sudden cardiac death [Recovered/Resolved]
  - Loss of consciousness [Recovered/Resolved]
  - Cardio-respiratory arrest [Recovering/Resolving]
  - Drug interaction [Unknown]

NARRATIVE: CASE EVENT DATE: 2016
